FAERS Safety Report 9224460 (Version 2)
Quarter: 2013Q4

REPORT INFORMATION
  Report Type: Spontaneous
  Country: BR (occurrence: BR)
  Receive Date: 20130411
  Receipt Date: 20131128
  Transmission Date: 20140711
  Serious: Yes (Other)
  Sender: FDA-Public Use
  Company Number: BR-AMGEN-BRASP2012065743

PATIENT
  Age: 48 Year
  Sex: Female
  Weight: 79 kg

DRUGS (4)
  1. ENBREL [Suspect]
     Indication: RHEUMATOID ARTHRITIS
     Dosage: 50 MG, 1X/WEEK
     Route: 058
     Dates: start: 201108
  2. ENBREL [Suspect]
     Indication: PSORIATIC ARTHROPATHY
  3. ATENOLOL [Concomitant]
     Indication: BLOOD PRESSURE INCREASED
     Dosage: 25 MG, 1X/DAY
  4. ISOFLAVON [Concomitant]
     Indication: MENOPAUSE
     Dosage: 50 MG, 1X/DAY (AT NIGHT)

REACTIONS (12)
  - Wound [Unknown]
  - Pain in extremity [Unknown]
  - Arthralgia [Unknown]
  - Dry skin [Unknown]
  - Limb injury [Unknown]
  - Gait disturbance [Unknown]
  - Activities of daily living impaired [Unknown]
  - Pyrexia [Unknown]
  - Swelling [Unknown]
  - Pruritus [Unknown]
  - Hand deformity [Not Recovered/Not Resolved]
  - Drug ineffective [Unknown]
